FAERS Safety Report 23099734 (Version 2)
Quarter: 2023Q4

REPORT INFORMATION
  Report Type: Spontaneous
  Country: JP (occurrence: JP)
  Receive Date: 20231024
  Receipt Date: 20231107
  Transmission Date: 20240109
  Serious: Yes (Other)
  Sender: FDA-Public Use
  Company Number: JP-BAYER-2023A140593

PATIENT
  Age: 56 Year
  Sex: Female

DRUGS (13)
  1. KERENDIA [Suspect]
     Active Substance: FINERENONE
     Indication: Type 2 diabetes mellitus
     Dosage: DAILY DOSE 10 MG
     Dates: start: 20230914, end: 20231004
  2. KERENDIA [Suspect]
     Active Substance: FINERENONE
     Indication: Chronic kidney disease
  3. BILASTINE [Suspect]
     Active Substance: BILASTINE
     Dosage: UNK
     Dates: end: 20231004
  4. EPADEL EM [Concomitant]
     Dosage: DAILY DOSE 1800 MG
  5. PRASUGREL HYDROCHLORIDE [Concomitant]
     Active Substance: PRASUGREL HYDROCHLORIDE
     Dosage: UNK
  6. JARDIANCE [Concomitant]
     Active Substance: EMPAGLIFLOZIN
     Dosage: UNK
  7. RUPAFIN [Concomitant]
     Active Substance: RUPATADINE FUMARATE
  8. AMOXICILLIN\CLARITHROMYCIN\ESOMEPRAZOLE [Concomitant]
     Active Substance: AMOXICILLIN\CLARITHROMYCIN\ESOMEPRAZOLE
     Dosage: DAILY DOSE 20 MG
  9. ASPIRIN [Concomitant]
     Active Substance: ASPIRIN
  10. ENTRESTO [Concomitant]
     Active Substance: SACUBITRIL\VALSARTAN
  11. CARVEDILOL [Concomitant]
     Active Substance: CARVEDILOL
  12. LIVALO [Concomitant]
     Active Substance: PITAVASTATIN CALCIUM
  13. EPLERENONE [Concomitant]
     Active Substance: EPLERENONE
     Dosage: UNK
     Dates: end: 20230913

REACTIONS (3)
  - Erythema multiforme [Recovered/Resolved]
  - Erythema [Recovering/Resolving]
  - Pruritus [Recovered/Resolved]

NARRATIVE: CASE EVENT DATE: 20230917
